FAERS Safety Report 13690819 (Version 3)
Quarter: 2017Q4

REPORT INFORMATION
  Report Type: Spontaneous
  Country: US (occurrence: US)
  Receive Date: 20170626
  Receipt Date: 20171226
  Transmission Date: 20180320
  Serious: No
  Sender: FDA-Public Use
  Company Number: US-CLOVIS ONCOLOGY-CLO-2017-000518

PATIENT
  Age: 43 Year
  Sex: Female

DRUGS (1)
  1. RUBRACA [Suspect]
     Active Substance: RUCAPARIB CAMSYLATE
     Indication: OVARIAN CANCER
     Dosage: 600 MG, BID
     Route: 048
     Dates: start: 20170501

REACTIONS (12)
  - Nausea [Unknown]
  - Fatigue [Not Recovered/Not Resolved]
  - Underdose [Unknown]
  - Abdominal discomfort [Not Recovered/Not Resolved]
  - Dehydration [Unknown]
  - Dysgeusia [Unknown]
  - Pain in extremity [Unknown]
  - Anxiety [Unknown]
  - Diarrhoea [Not Recovered/Not Resolved]
  - Constipation [Not Recovered/Not Resolved]
  - Drug dose omission [Unknown]
  - Sunburn [Recovered/Resolved]

NARRATIVE: CASE EVENT DATE: 2017
